FAERS Safety Report 4413086-5 (Version None)
Quarter: 2004Q3

REPORT INFORMATION
  Report Type: 
  Country: None (occurrence: None)
  Receive Date: 20040802
  Receipt Date: 20040802
  Transmission Date: 20050211
  Serious: No
  Sender: FDA-Public Use
  Company Number: None

PATIENT
  Age: 65 Year
  Sex: Male
  Weight: 105.6881 kg

DRUGS (1)
  1. LORAZEPAM [Suspect]
     Indication: RESTLESSNESS
     Dosage: 1 MG EVERY 6 HO IV
     Route: 042
     Dates: start: 20040623, end: 20040717

REACTIONS (1)
  - AGITATION [None]
